FAERS Safety Report 23620771 (Version 2)
Quarter: 2024Q2

REPORT INFORMATION
  Report Type: Spontaneous
  Country: US (occurrence: US)
  Receive Date: 20240312
  Receipt Date: 20240531
  Transmission Date: 20240716
  Serious: No
  Sender: FDA-Public Use
  Company Number: US-Axsome Therapeutics, Inc.-AXS202402-000104

PATIENT
  Age: 71 Year
  Sex: Female

DRUGS (6)
  1. AUVELITY [Suspect]
     Active Substance: BUPROPION HYDROCHLORIDE\DEXTROMETHORPHAN HYDROBROMIDE
     Indication: Major depression
     Dosage: 45MG/105MG
     Dates: start: 202306, end: 202401
  2. AUVELITY [Suspect]
     Active Substance: BUPROPION HYDROCHLORIDE\DEXTROMETHORPHAN HYDROBROMIDE
     Indication: Anxiety
     Dosage: 45MG/105MG; ONE IN THE MORNING, ONE AT NIGHT WITH FOOD
     Dates: end: 202401
  3. AUVELITY [Suspect]
     Active Substance: BUPROPION HYDROCHLORIDE\DEXTROMETHORPHAN HYDROBROMIDE
     Indication: Paranoia
  4. XANAX [Concomitant]
     Active Substance: ALPRAZOLAM
     Indication: Product used for unknown indication
     Dosage: UNK
  5. CANNABIS SATIVA SUBSP. INDICA TOP [Concomitant]
     Active Substance: CANNABIS SATIVA SUBSP. INDICA TOP
     Indication: Product used for unknown indication
     Dosage: UNK
  6. DRONABINOL [Concomitant]
     Active Substance: DRONABINOL
     Indication: Product used for unknown indication

REACTIONS (8)
  - Memory impairment [Unknown]
  - Anger [Unknown]
  - Confusional state [Unknown]
  - Anxiety [Unknown]
  - Depression [Unknown]
  - Somnolence [Unknown]
  - Therapy interrupted [Unknown]
  - Inability to afford medication [Unknown]

NARRATIVE: CASE EVENT DATE: 20240101
